FAERS Safety Report 8503373-3 (Version None)
Quarter: 2012Q3

REPORT INFORMATION
  Report Type: 
  Country: None (occurrence: None)
  Receive Date: 20120711
  Receipt Date: 20120705
  Transmission Date: 20120928
  Serious: No
  Sender: FDA-Public Use
  Company Number: US-PFIZER INC-2012132679

PATIENT
  Sex: Female
  Weight: 95.238 kg

DRUGS (12)
  1. SEROQUEL [Concomitant]
     Indication: ANXIETY
  2. TRAZODONE [Concomitant]
     Indication: SLEEP DISORDER
     Dosage: 5 MG, AS NEEDED
  3. ZANTAC [Concomitant]
     Indication: DYSPEPSIA
     Dosage: 150 MG, AS NEEDED
  4. LISINOPRIL [Concomitant]
     Dosage: 20 MG, DAILY
  5. LEXAPRO [Concomitant]
     Indication: DEPRESSION
     Dosage: 40 MG, DAILY
  6. SEROQUEL [Concomitant]
     Indication: DEPRESSION
     Dosage: 200 MG, DAILY
  7. SUTENT [Suspect]
     Indication: HEPATIC NEOPLASM MALIGNANT
     Dosage: 12.5 MG, 3X/DAY
     Dates: start: 20120618
  8. INSULIN [Concomitant]
     Indication: DIABETES MELLITUS
     Dosage: UNK
  9. LEXAPRO [Concomitant]
     Indication: ANXIETY
  10. CELEXA [Concomitant]
  11. SUTENT [Suspect]
     Indication: PANCREATIC CARCINOMA
     Dosage: 12.5 MG, 3X/DAY
     Dates: start: 20120428, end: 20120613
  12. LIPITOR [Concomitant]
     Indication: BLOOD CHOLESTEROL INCREASED
     Dosage: 40 MG, AT EVENING

REACTIONS (10)
  - PLANTAR ERYTHEMA [None]
  - ORAL PAIN [None]
  - ORAL HERPES [None]
  - SKIN LESION [None]
  - LACRIMATION INCREASED [None]
  - GLOSSODYNIA [None]
  - STOMATITIS [None]
  - WEIGHT DECREASED [None]
  - HAIR COLOUR CHANGES [None]
  - EXOSTOSIS [None]
